FAERS Safety Report 9355175 (Version 1)
Quarter: 2013Q2

REPORT INFORMATION
  Report Type: Report from Study
  Country: CA (occurrence: CA)
  Receive Date: 20130619
  Receipt Date: 20130619
  Transmission Date: 20140414
  Serious: Yes (Other)
  Sender: FDA-Public Use
  Company Number: PHHY2013CA006902

PATIENT
  Sex: Female

DRUGS (2)
  1. GLEEVEC [Suspect]
     Indication: GASTROINTESTINAL STROMAL TUMOUR
     Dosage: 400 MG, QD
     Route: 048
     Dates: start: 201009, end: 201306
  2. WATER PILLS [Concomitant]

REACTIONS (5)
  - Hepatic neoplasm [Unknown]
  - Back pain [Unknown]
  - Skin hypopigmentation [Unknown]
  - Migraine [Unknown]
  - Local swelling [Unknown]
